FAERS Safety Report 4325710-6 (Version None)
Quarter: 2004Q1

REPORT INFORMATION
  Report Type: 
  Country: None (occurrence: None)
  Receive Date: 20040324
  Receipt Date: 20040311
  Transmission Date: 20041129
  Serious: Yes (Death)
  Sender: FDA-Public Use
  Company Number: EWC040338330

PATIENT
  Age: 50 Year
  Sex: Female

DRUGS (4)
  1. OLANZAPINE [Suspect]
     Indication: SCHIZOPHRENIA
     Dosage: 15 MG
  2. MICARDIS [Concomitant]
  3. SELEKTINE (PRAVASTATIN SODIUM) [Concomitant]
  4. METFORMIN HCL [Concomitant]

REACTIONS (1)
  - DEATH [None]
